FAERS Safety Report 25401867 (Version 1)
Quarter: 2025Q2

REPORT INFORMATION
  Report Type: Spontaneous
  Country: US (occurrence: None)
  Receive Date: 20250605
  Receipt Date: 20250605
  Transmission Date: 20250717
  Serious: Yes (Other)
  Sender: FDA-CTU
  Company Number: None

PATIENT
  Age: 50 Year
  Sex: Female
  Weight: 49.5 kg

DRUGS (2)
  1. CETIRIZINE HYDROCHLORIDE [Suspect]
     Active Substance: CETIRIZINE HYDROCHLORIDE
     Dates: start: 20200301, end: 20250604
  2. VITAMIN D [Suspect]
     Active Substance: VITAMIN D NOS

REACTIONS (2)
  - Pruritus [None]
  - Withdrawal syndrome [None]

NARRATIVE: CASE EVENT DATE: 20220401
